FAERS Safety Report 5699707-8 (Version None)
Quarter: 2008Q2

REPORT INFORMATION
  Report Type: 
  Country: None (occurrence: None)
  Receive Date: 20080410
  Receipt Date: 20080328
  Transmission Date: 20081010
  Serious: Yes (Hospitalization, Disabling)
  Sender: FDA-Public Use
  Company Number: PHRM2008FR01143

PATIENT
  Age: 70 Year
  Sex: Female
  Weight: 56 kg

DRUGS (7)
  1. ZOMETA [Suspect]
     Indication: METASTASES TO BONE
     Dosage: 4 MG, ONCE/SINGLE
     Route: 042
     Dates: start: 20080121, end: 20080121
  2. CRESTOR [Concomitant]
     Indication: HYPERCHOLESTEROLAEMIA
  3. DOXORUBICIN HCL [Concomitant]
     Dosage: 13.5 MG/DAY FOR 4 DAYS
  4. VELCADE [Suspect]
     Dosage: 2 MG DAILY AT DAY 1, 4, 8, 11
  5. DEXAMETHASONE [Concomitant]
     Dosage: 40 MG DAY 1, 2, 3, 4
     Route: 042
  6. THALIDOMIDE [Suspect]
     Dosage: 1 MG, QD
     Route: 048
     Dates: start: 20080206, end: 20080208
  7. THALIDOMIDE [Concomitant]
     Dosage: 1 MG, QD
     Route: 048
     Dates: start: 20080206, end: 20080208

REACTIONS (6)
  - DRUG INTERACTION [None]
  - FACIAL PALSY [None]
  - GUILLAIN-BARRE SYNDROME [None]
  - NERVE ROOT LESION [None]
  - PAIN IN EXTREMITY [None]
  - PARAESTHESIA [None]
